FAERS Safety Report 12704856 (Version 1)
Quarter: 2016Q3

REPORT INFORMATION
  Report Type: Spontaneous
  Country: US (occurrence: US)
  Receive Date: 20160831
  Receipt Date: 20160831
  Transmission Date: 20161109
  Serious: No
  Sender: FDA-Public Use
  Company Number: US-BAYER-2016-163484

PATIENT
  Sex: Female

DRUGS (5)
  1. MIDOL COMPLETE [Suspect]
     Active Substance: ACETAMINOPHEN\CAFFEINE\PYRILAMINE MALEATE
     Dosage: UNK
     Route: 048
  2. MIDOL [Suspect]
     Active Substance: IBUPROFEN
     Dosage: UNK
     Route: 048
  3. UNISOM [DOXYLAMINE SUCCINATE] [Concomitant]
  4. MIDOL EXTENDED RELIEF [Suspect]
     Active Substance: NAPROXEN SODIUM
     Route: 048
  5. DRAMAMINE [Concomitant]
     Active Substance: DIMENHYDRINATE

REACTIONS (3)
  - Tinnitus [None]
  - Product use issue [None]
  - Therapeutic response unexpected [None]
